FAERS Safety Report 7800144-8 (Version None)
Quarter: 2011Q4

REPORT INFORMATION
  Report Type: 
  Country: None (occurrence: None)
  Receive Date: 20111006
  Receipt Date: 20111004
  Transmission Date: 20120403
  Serious: Yes (Life-Threatening)
  Sender: FDA-Public Use
  Company Number: DE-B.I. PHARMACEUTICALS,INC./RIDGEFIELD-2011-DE-05564DE

PATIENT
  Sex: Male
  Weight: 100 kg

DRUGS (7)
  1. ATACAND [Concomitant]
     Dosage: 16 MG
  2. LASIX [Concomitant]
     Dosage: 40 MG
  3. SPIRONOLACTONE [Concomitant]
     Dosage: 50 MG
  4. NEBIVOLOL HCL [Concomitant]
     Dosage: 5 MG
  5. NOVODIGAL [Concomitant]
     Dosage: 0.2 NR
  6. TU 50 [Concomitant]
     Dosage: 50 NR
  7. PRADAXA [Suspect]
     Indication: ATRIAL FIBRILLATION
     Dosage: 300 MG
     Dates: start: 20110926, end: 20110928

REACTIONS (1)
  - CEREBROVASCULAR ACCIDENT [None]
